FAERS Safety Report 23698804 (Version 1)
Quarter: 2024Q2

REPORT INFORMATION
  Report Type: Spontaneous
  Country: US (occurrence: US)
  Receive Date: 20240402
  Receipt Date: 20240402
  Transmission Date: 20240715
  Serious: No
  Sender: FDA-Public Use
  Company Number: US-SA-SAC20240329000288

PATIENT
  Sex: Female
  Weight: 88.4 kg

DRUGS (1)
  1. DUPIXENT [Suspect]
     Active Substance: DUPILUMAB
     Indication: Nasal polyps
     Dosage: DOSE AND ROUTE PRESCRIBED: 300 MG UNDER THE SKIN FREQUENCY-: EVERY 14 DAYS
     Route: 065

REACTIONS (1)
  - Maternal exposure timing unspecified [Unknown]
